FAERS Safety Report 18967297 (Version 3)
Quarter: 2021Q2

REPORT INFORMATION
  Report Type: Spontaneous
  Country: IT (occurrence: IT)
  Receive Date: 20210304
  Receipt Date: 20210415
  Transmission Date: 20210717
  Serious: Yes (Death, Other)
  Sender: FDA-Public Use
  Company Number: IT-JAZZ-2021-IT-003716

PATIENT
  Age: 70 Year
  Sex: Female

DRUGS (1)
  1. VYXEOS [Suspect]
     Active Substance: CYTARABINE\DAUNORUBICIN
     Indication: ACUTE MYELOID LEUKAEMIA
     Dosage: INDUCTION CYCLE
     Dates: start: 20200208

REACTIONS (2)
  - Bone marrow failure [Fatal]
  - Sepsis [Fatal]

NARRATIVE: CASE EVENT DATE: 20200321
